FAERS Safety Report 25521960 (Version 1)
Quarter: 2025Q3

REPORT INFORMATION
  Report Type: Report from Study
  Country: US (occurrence: US)
  Receive Date: 20250706
  Receipt Date: 20250706
  Transmission Date: 20251021
  Serious: Yes (Hospitalization)
  Sender: ABBVIE
  Company Number: US-ABBVIE-6331773

PATIENT
  Age: 77 Year
  Sex: Male

DRUGS (1)
  1. HUMIRA [Suspect]
     Active Substance: ADALIMUMAB
     Indication: Crohn^s disease
     Route: 058
     Dates: start: 20250417, end: 202506

REACTIONS (4)
  - Liver disorder [Not Recovered/Not Resolved]
  - Abdominal pain upper [Unknown]
  - Blood bilirubin increased [Recovering/Resolving]
  - Abdominal pain [Recovering/Resolving]

NARRATIVE: CASE EVENT DATE: 20250101
